FAERS Safety Report 5626338-8 (Version None)
Quarter: 2008Q1

REPORT INFORMATION
  Report Type: 
  Country: None (occurrence: None)
  Receive Date: 20080212
  Receipt Date: 20080212
  Transmission Date: 20080703
  Serious: No
  Sender: FDA-Public Use
  Company Number: None

PATIENT

DRUGS (4)
  1. AMBIEN [Suspect]
     Indication: COELIAC DISEASE
     Dosage: ONCE QHR PO
     Route: 048
  2. AMBIEN [Suspect]
     Indication: INSOMNIA
     Dosage: ONCE QHR PO
     Route: 048
  3. TRAZODONE HCL [Concomitant]
  4. RESTORIL [Concomitant]

REACTIONS (3)
  - COELIAC DISEASE [None]
  - CONDITION AGGRAVATED [None]
  - REACTION TO DRUG EXCIPIENTS [None]
